FAERS Safety Report 4554124-9 (Version None)
Quarter: 2005Q1

REPORT INFORMATION
  Report Type: 
  Country: None (occurrence: None)
  Receive Date: 20050113
  Receipt Date: 20050113
  Transmission Date: 20050727
  Serious: No
  Sender: FDA-Public Use
  Company Number: None

PATIENT
  Sex: Male
  Weight: 130.4091 kg

DRUGS (1)
  1. ELOXATIN [Suspect]
     Dosage: 211 MG  Q 2 WEEKS INTRAVENOUS
     Route: 042
     Dates: start: 20040915, end: 20050111

REACTIONS (4)
  - FLUSHING [None]
  - INFUSION RELATED REACTION [None]
  - PRURITUS [None]
  - URTICARIA [None]
